FAERS Safety Report 14229657 (Version 3)
Quarter: 2019Q2

REPORT INFORMATION
  Report Type: Spontaneous
  Country: US (occurrence: US)
  Receive Date: 20171128
  Receipt Date: 20190516
  Transmission Date: 20190711
  Serious: Yes (Other)
  Sender: FDA-Public Use
  Company Number: US-ASTRAZENECA-2017SF18628

PATIENT
  Age: 27263 Day
  Sex: Female
  Weight: 95.7 kg

DRUGS (65)
  1. NEXIUM [Suspect]
     Active Substance: ESOMEPRAZOLE MAGNESIUM
     Indication: GASTROOESOPHAGEAL REFLUX DISEASE
     Route: 048
     Dates: start: 2013, end: 2014
  2. NEXIUM [Suspect]
     Active Substance: ESOMEPRAZOLE MAGNESIUM
     Indication: GASTROOESOPHAGEAL REFLUX DISEASE
     Route: 048
     Dates: start: 2013, end: 2014
  3. NEXIUM [Suspect]
     Active Substance: ESOMEPRAZOLE MAGNESIUM
     Indication: GASTROOESOPHAGEAL REFLUX DISEASE
     Route: 048
  4. SYNTHROID [Concomitant]
     Active Substance: LEVOTHYROXINE SODIUM
     Dosage: LEVOTHYROXINE- TAKE 1 TABLET (112 MEG TOTAL) BYMOUTH DAILY. TAKE ON AN EMPTY STOMACH
     Route: 048
     Dates: start: 20141231
  5. WESTCORT [Concomitant]
     Active Substance: HYDROCORTISONE VALERATE
  6. CRESTOR [Concomitant]
     Active Substance: ROSUVASTATIN CALCIUM
     Route: 048
     Dates: start: 20100907
  7. ZETIA [Concomitant]
     Active Substance: EZETIMIBE
     Route: 048
     Dates: start: 20100123
  8. BONIVA [Concomitant]
     Active Substance: IBANDRONATE SODIUM
     Dates: start: 20100728
  9. TRICOR [Concomitant]
     Active Substance: FENOFIBRATE
     Dosage: FENOFIBRATE
     Dates: start: 20110912
  10. DIOVAN [Concomitant]
     Active Substance: VALSARTAN
     Dates: start: 20101123
  11. LOSARTAN POTASSIUM. [Concomitant]
     Active Substance: LOSARTAN POTASSIUM
     Dates: start: 20110912
  12. PREDNISOLONE ACETATE. [Concomitant]
     Active Substance: PREDNISOLONE ACETATE
     Dosage: 1% EYE DROP
     Dates: start: 20150518
  13. NEXIUM [Suspect]
     Active Substance: ESOMEPRAZOLE MAGNESIUM
     Indication: GASTROOESOPHAGEAL REFLUX DISEASE
     Route: 048
     Dates: start: 20101006
  14. NEXIUM [Suspect]
     Active Substance: ESOMEPRAZOLE MAGNESIUM
     Indication: GASTROOESOPHAGEAL REFLUX DISEASE
     Dosage: ESOMEPRAZOLE MAGNESIUM DR
     Route: 065
     Dates: start: 20160115
  15. JANUVIA [Concomitant]
     Active Substance: SITAGLIPTIN PHOSPHATE
  16. SYNTHROID [Concomitant]
     Active Substance: LEVOTHYROXINE SODIUM
     Route: 048
     Dates: start: 20101130
  17. NASONEX [Concomitant]
     Active Substance: MOMETASONE FUROATE
     Dosage: 50 MCG/ACTUATION NASAL SPRAY- 2 SPRAYS BY NASAL ROUTE DAILY.
     Dates: start: 20100123
  18. BACTROBAN [Concomitant]
     Active Substance: MUPIROCIN\MUPIROCIN CALCIUM
     Dosage: APPLY TOPICALLY DAILY.
  19. MUCINEX [Concomitant]
     Active Substance: GUAIFENESIN
     Route: 048
  20. KETOROLAC [Concomitant]
     Active Substance: KETOROLAC\KETOROLAC TROMETHAMINE
     Dosage: 0.5% OPHTH SOLUTION
     Dates: start: 20150518
  21. ESCITALOPRAM [Concomitant]
     Active Substance: ESCITALOPRAM OXALATE
     Dates: start: 20160115
  22. VENTOLIN [Concomitant]
     Active Substance: ALBUTEROL SULFATE
     Dosage: HFA 90 MCG INHALER
     Dates: start: 20160527
  23. SINEMET [Concomitant]
     Active Substance: CARBIDOPA\LEVODOPA
     Dosage: 25-100 MG PER TABLET
     Dates: start: 20100901
  24. LIPITOR [Concomitant]
     Active Substance: ATORVASTATIN CALCIUM
     Route: 048
     Dates: start: 20141014
  25. PROZAC [Concomitant]
     Active Substance: FLUOXETINE HYDROCHLORIDE
     Route: 048
     Dates: start: 20100902
  26. SUCRALFATE. [Concomitant]
     Active Substance: SUCRALFATE
     Dates: start: 20160624
  27. NEXIUM [Suspect]
     Active Substance: ESOMEPRAZOLE MAGNESIUM
     Indication: GASTROOESOPHAGEAL REFLUX DISEASE
     Route: 048
     Dates: start: 20101006
  28. MIACALCIN [Concomitant]
     Active Substance: CALCITONIN SALMON
  29. TRADJENTA [Concomitant]
     Active Substance: LINAGLIPTIN
     Route: 048
     Dates: start: 20150119
  30. ONGLYZA [Concomitant]
     Active Substance: SAXAGLIPTIN HYDROCHLORIDE
     Route: 048
     Dates: start: 20111120
  31. LIPITOR [Concomitant]
     Active Substance: ATORVASTATIN CALCIUM
     Dosage: GENERIC
     Route: 048
     Dates: start: 20141124
  32. REQUIP [Concomitant]
     Active Substance: ROPINIROLE HYDROCHLORIDE
     Route: 048
     Dates: start: 20100123
  33. ACTOS [Concomitant]
     Active Substance: PIOGLITAZONE HYDROCHLORIDE
     Route: 048
     Dates: start: 20150918
  34. CYCLOBENZAPRINE. [Concomitant]
     Active Substance: CYCLOBENZAPRINE
     Dates: start: 20101011
  35. TRAMADOL HYDROCHLORIDE. [Concomitant]
     Active Substance: TRAMADOL HYDROCHLORIDE
     Route: 048
     Dates: start: 20120201
  36. GLIPIZIDE. [Concomitant]
     Active Substance: GLIPIZIDE
     Dosage: ER
     Route: 048
     Dates: start: 20120201
  37. IBUPROFEN. [Concomitant]
     Active Substance: IBUPROFEN
     Dates: start: 20140530
  38. LISINOPRIL. [Concomitant]
     Active Substance: LISINOPRIL
     Dates: start: 20150218
  39. NEXIUM [Suspect]
     Active Substance: ESOMEPRAZOLE MAGNESIUM
     Indication: GASTROOESOPHAGEAL REFLUX DISEASE
     Dosage: ESOMEPRAZOLE MAGNESIUM DR
     Route: 065
     Dates: start: 20160115
  40. NEXIUM [Suspect]
     Active Substance: ESOMEPRAZOLE MAGNESIUM
     Indication: GASTROOESOPHAGEAL REFLUX DISEASE
     Route: 048
  41. CALCIUM-VITAMIN D [Concomitant]
     Active Substance: CALCIUM\VITAMIN D
     Dosage: 600 MG(1,500MG) -400 UNIT TAB-TAKE 1 TABLET BY MOUTH 2 TIMES DAILY WITH MEALS-ORAL
     Dates: start: 20150220
  42. GLUCOTROL [Concomitant]
     Active Substance: GLIPIZIDE
     Dosage: 24 HR TABLET- TAKE 1 TABLET (10 MG TOTAL) BY MOUTH DAILY.
     Route: 048
  43. ASPIRIN. [Concomitant]
     Active Substance: ASPIRIN
     Route: 048
  44. DOXYCYCLINE HYCLATE. [Concomitant]
     Active Substance: DOXYCYCLINE HYCLATE
     Dates: start: 20120818
  45. ALLOPURINOL. [Concomitant]
     Active Substance: ALLOPURINOL
     Dates: start: 20160211
  46. TRAMADOL-ACETAMINOPHEN [Concomitant]
     Active Substance: ACETAMINOPHEN\TRAMADOL
     Dates: start: 20160328
  47. GLUCOTROL [Concomitant]
     Active Substance: GLIPIZIDE
     Route: 048
     Dates: start: 20150119
  48. ZANTAC [Concomitant]
     Active Substance: RANITIDINE HYDROCHLORIDE
     Route: 048
     Dates: start: 20100123
  49. AUGMENTIN [Concomitant]
     Active Substance: AMOXICILLIN\CLAVULANATE POTASSIUM
     Dosage: 875-125 MG- TAKE 1 TABLET BY MOUTH 2 (TWO) TIMES DAILY
     Route: 048
     Dates: start: 20160502
  50. PERIDEX [Concomitant]
     Active Substance: CHLORHEXIDINE GLUCONATE
  51. ERGOCALCIFEROL. [Concomitant]
     Active Substance: ERGOCALCIFEROL
     Dosage: 50,000 UNIT- TAKE 1 CAPSULE (50,000 UNITS TOTAL) BY MOUTH ONCE A WEEK. FOR 3 MONTHS, THEN TAKE ON...
     Route: 048
     Dates: start: 20160303
  52. HYDROCODONE- ACETAMINOPHEN [Concomitant]
     Dates: start: 20100901
  53. TRICOR [Concomitant]
     Active Substance: FENOFIBRATE
     Dates: start: 20100901
  54. PREDNISONE. [Concomitant]
     Active Substance: PREDNISONE
     Route: 048
     Dates: start: 20151229
  55. VOLTAREN [Concomitant]
     Active Substance: DICLOFENAC SODIUM
     Dates: start: 20100904
  56. AMLODIPINE BESYLATE. [Concomitant]
     Active Substance: AMLODIPINE BESYLATE
     Dates: start: 20101220
  57. FLUOXETINE HYDROCHLORIDE. [Concomitant]
     Active Substance: FLUOXETINE HYDROCHLORIDE
     Route: 048
     Dates: start: 20100902
  58. SULINDAC. [Concomitant]
     Active Substance: SULINDAC
     Dates: start: 20160123
  59. BENZONATATE. [Concomitant]
     Active Substance: BENZONATATE
     Dates: start: 20160502
  60. PRAVASTATIN SODIUM. [Concomitant]
     Active Substance: PRAVASTATIN SODIUM
     Dates: start: 20160909
  61. COZAAR [Concomitant]
     Active Substance: LOSARTAN POTASSIUM
     Route: 048
  62. AMOXICILLIN. [Concomitant]
     Active Substance: AMOXICILLIN
     Dates: start: 20140325
  63. HYDROCORTISONE VALERATE. [Concomitant]
     Active Substance: HYDROCORTISONE VALERATE
     Dates: start: 20150106
  64. OFLOXACIN. [Concomitant]
     Active Substance: OFLOXACIN
     Dosage: 0.3% EYE DROPS
     Dates: start: 20150518
  65. MELOXICAM. [Concomitant]
     Active Substance: MELOXICAM
     Route: 048
     Dates: start: 20151214

REACTIONS (2)
  - Chronic kidney disease [Not Recovered/Not Resolved]
  - Renal failure [Unknown]

NARRATIVE: CASE EVENT DATE: 20140623
